FAERS Safety Report 17127661 (Version 3)
Quarter: 2022Q2

REPORT INFORMATION
  Report Type: Report from Study
  Country: IT (occurrence: None)
  Receive Date: 20191209
  Receipt Date: 20220603
  Transmission Date: 20220721
  Serious: Yes (Hospitalization)
  Sender: FDA-Public Use
  Company Number: IT-ROCHE-2489867

PATIENT
  Age: 63 Year
  Sex: Male
  Weight: 62 kg

DRUGS (9)
  1. BEVACIZUMAB [Suspect]
     Active Substance: BEVACIZUMAB
     Indication: Colorectal cancer metastatic
     Dosage: DATE OF LAST DOSE (300 MG) PRIOR TO EVENT ONSET: 18/OCT/2019?DRUG WAS RESTARTED FROM 02/DEC/2019
     Route: 042
     Dates: start: 20190627
  2. IRINOTECAN [Suspect]
     Active Substance: IRINOTECAN
     Indication: Colorectal cancer metastatic
     Dosage: DATE OF MOST RECENT DOSE 18/OCT/2019 (210 MG)?DRUG PERMANENTLY DISCONTINUED ON 06/NOV/2019
     Route: 042
     Dates: start: 20190627
  3. OXALIPLATIN [Suspect]
     Active Substance: OXALIPLATIN
     Indication: Colorectal cancer metastatic
     Dosage: DATE OF MOST RECENT DOSE (140 MG) ADMINISTORED PRIOR TO SAE: 18/OCT/2019.?PERMANENTLY DISCONTINUED F
     Route: 042
     Dates: start: 20190627
  4. FLUOROURACIL [Suspect]
     Active Substance: FLUOROURACIL
     Indication: Colorectal cancer metastatic
     Dosage: DATE OF LAST DOSE (3800) PRIOR TO EVENT ONSET: 18/OCT/2019?DRUG RESTARTED FROM 02/DEC/2021.
     Route: 042
     Dates: start: 20190627
  5. DIETARY SUPPLEMENT [Concomitant]
     Active Substance: DIETARY SUPPLEMENT
     Route: 048
     Dates: start: 20190619
  6. HEPARIN [Concomitant]
     Active Substance: HEPARIN SODIUM
     Route: 058
     Dates: start: 20190619
  7. ACETAMINOPHEN [Concomitant]
     Active Substance: ACETAMINOPHEN
     Indication: Pain
     Route: 048
     Dates: start: 20190618
  8. TAPENTADOL [Concomitant]
     Active Substance: TAPENTADOL
     Indication: Pain
     Route: 048
     Dates: start: 20190618
  9. LEVOFLOXACIN [Concomitant]
     Active Substance: LEVOFLOXACIN

REACTIONS (3)
  - Device related thrombosis [Recovered/Resolved]
  - Anaemia [Recovered/Resolved]
  - Pyrexia [Recovered/Resolved]

NARRATIVE: CASE EVENT DATE: 20191106
